FAERS Safety Report 9336586 (Version 4)
Quarter: 2014Q3

REPORT INFORMATION
  Report Type: Spontaneous
  Country: US (occurrence: US)
  Receive Date: 20130607
  Receipt Date: 20140725
  Transmission Date: 20150326
  Serious: Yes (Life-Threatening, Hospitalization)
  Sender: FDA-Public Use
  Company Number: US-BAYER-2013-066365

PATIENT
  Age: 19 Year
  Sex: Female

DRUGS (6)
  1. AVIANE [Concomitant]
     Active Substance: ETHINYL ESTRADIOL\LEVONORGESTREL
  2. FERROUS SULFATE [Concomitant]
     Active Substance: FERROUS SULFATE\FERROUS SULFATE, DRIED
  3. VICODIN [Concomitant]
     Active Substance: ACETAMINOPHEN\HYDROCODONE BITARTRATE
  4. MIRENA [Suspect]
     Active Substance: LEVONORGESTREL
     Indication: CONTRACEPTION
     Dosage: 20 MCG/24HR, CONT
     Route: 015
     Dates: start: 20091217, end: 20110919
  5. DOCUSATE SODIUM. [Concomitant]
     Active Substance: DOCUSATE SODIUM
  6. IBUPROFEN. [Concomitant]
     Active Substance: IBUPROFEN

REACTIONS (13)
  - Emotional distress [None]
  - Pain [None]
  - Depression [None]
  - Anxiety [None]
  - Pelvic pain [None]
  - Anhedonia [None]
  - Drug ineffective [None]
  - Ectopic pregnancy with contraceptive device [None]
  - Device dislocation [None]
  - Abdominal pain lower [None]
  - General physical health deterioration [None]
  - Ruptured ectopic pregnancy [None]
  - Injury [None]

NARRATIVE: CASE EVENT DATE: 2011
